FAERS Safety Report 6648772-X (Version None)
Quarter: 2010Q1

REPORT INFORMATION
  Report Type: 
  Country: None (occurrence: None)
  Receive Date: 20100324
  Receipt Date: 20100311
  Transmission Date: 20100710
  Serious: Yes (Life-Threatening, Hospitalization)
  Sender: FDA-Public Use
  Company Number: CH-ELI_LILLY_AND_COMPANY-CH201003003885

PATIENT
  Age: 50 Year
  Sex: Female
  Weight: 73 kg

DRUGS (5)
  1. HUMALOG [Suspect]
     Indication: TYPE 1 DIABETES MELLITUS
     Dosage: 21.6 U, DAILY (1/D)
     Route: 058
     Dates: start: 19990901
  2. HUMALOG [Suspect]
     Dosage: 20 U, DAILY (1/D)
     Route: 058
     Dates: start: 19990901
  3. OXYCODON [Concomitant]
     Indication: ANALGESIC THERAPY
     Dosage: 60 MG, DAILY (1/D)
     Route: 048
     Dates: start: 20040101
  4. VENLAFAXINE [Concomitant]
     Indication: PAIN
     Dosage: 150 MG, DAILY (1/D)
     Route: 048
     Dates: start: 20040101
  5. PLAQUENIL /00072601/ [Concomitant]
     Indication: COLLAGEN DISORDER
     Dosage: 200 MG, DAILY (1/D)
     Route: 048
     Dates: start: 20040101

REACTIONS (4)
  - DIABETIC COMA [None]
  - HYPERGLYCAEMIA [None]
  - SOMNOLENCE [None]
  - VOMITING [None]
